FAERS Safety Report 16705375 (Version 3)
Quarter: 2025Q2

REPORT INFORMATION
  Report Type: Spontaneous
  Country: US (occurrence: US)
  Receive Date: 20190815
  Receipt Date: 20250516
  Transmission Date: 20250717
  Serious: Yes (Hospitalization)
  Sender: COHERUS
  Company Number: US-ERA CONSULTING GMBH-2019US004972

PATIENT

DRUGS (2)
  1. UDENYCA [Suspect]
     Active Substance: PEGFILGRASTIM-CBQV
     Indication: Infection prophylaxis
     Route: 058
     Dates: start: 20190421
  2. CARBOPLA + DOCETAXEL [Concomitant]
     Indication: Breast cancer
     Route: 042

REACTIONS (3)
  - Rash [Unknown]
  - Swollen tongue [Unknown]
  - Lip swelling [Unknown]
